FAERS Safety Report 12267353 (Version 1)
Quarter: 2016Q2

REPORT INFORMATION
  Report Type: Spontaneous
  Country: US (occurrence: None)
  Receive Date: 20160413
  Receipt Date: 20160413
  Transmission Date: 20160815
  Serious: Yes (Other)
  Sender: FDA-Public Use
  Company Number: None

PATIENT
  Age: 16 Year

DRUGS (2)
  1. JADENU [Suspect]
     Active Substance: DEFERASIROX
     Indication: IRON OVERLOAD
     Dosage: 180MG (1 TAB) ONCE A DAY ORAL
     Route: 048
     Dates: start: 20160223
  2. JADENU [Suspect]
     Active Substance: DEFERASIROX
     Indication: IRON OVERLOAD
     Dosage: 1080MG (3 TABS) ONCE A DAY ORAL
     Route: 048
     Dates: start: 20151023

REACTIONS (1)
  - Headache [None]

NARRATIVE: CASE EVENT DATE: 20160407
